FAERS Safety Report 11169880 (Version 1)
Quarter: 2015Q2

REPORT INFORMATION
  Report Type: Spontaneous
  Country: US (occurrence: None)
  Receive Date: 20150604
  Receipt Date: 20150604
  Transmission Date: 20150821
  Serious: Yes (Hospitalization)
  Sender: FDA-Public Use
  Company Number: US-2015VAL000365

PATIENT
  Age: 90 Year
  Sex: Female

DRUGS (6)
  1. ADENOSINE (ADENOSINE) [Concomitant]
  2. BENAZEPRIL [Concomitant]
     Active Substance: BENAZEPRIL\BENAZEPRIL HYDROCHLORIDE
  3. DIURETICS (DIURETICS) [Concomitant]
     Active Substance: UNSPECIFIED INGREDIENT
  4. NORMAL SALIE (SODIUM CHLORIDE) [Concomitant]
  5. METOPROLOL TARTRATE. [Suspect]
     Active Substance: METOPROLOL TARTRATE
     Indication: HYPERTENSION
  6. ATORVASTATIN (ATORVASTATIN) [Concomitant]
     Active Substance: ATORVASTATIN

REACTIONS (3)
  - Blood pressure increased [None]
  - Palpitations [None]
  - Chest discomfort [None]
